FAERS Safety Report 6015582-6 (Version None)
Quarter: 2008Q4

REPORT INFORMATION
  Report Type: 
  Country: None (occurrence: None)
  Receive Date: 20081219
  Receipt Date: 20081219
  Transmission Date: 20090506
  Serious: No
  Sender: FDA-Public Use
  Company Number: None

PATIENT
  Age: 23 Year
  Sex: Female
  Weight: 54.4316 kg

DRUGS (1)
  1. EFFEXOR XR [Suspect]
     Indication: ANXIETY DISORDER
     Dosage: 150MG SID PO
     Route: 048

REACTIONS (4)
  - ABNORMAL DREAMS [None]
  - DYSURIA [None]
  - HALLUCINATION [None]
  - TACHYCARDIA [None]
